FAERS Safety Report 5873788-0 (Version None)
Quarter: 2008Q3

REPORT INFORMATION
  Report Type: 
  Country: None (occurrence: None)
  Receive Date: 20080908
  Receipt Date: 20080825
  Transmission Date: 20090109
  Serious: Yes (Other)
  Sender: FDA-Public Use
  Company Number: US-PFIZER INC-2008071734

PATIENT
  Sex: Male
  Weight: 178 kg

DRUGS (2)
  1. CHANTIX [Suspect]
     Indication: SMOKING CESSATION THERAPY
     Dates: start: 20080801, end: 20080814
  2. OMEPRAZOLE [Concomitant]

REACTIONS (4)
  - CERVICOBRACHIAL SYNDROME [None]
  - NERVE COMPRESSION [None]
  - SLEEP DISORDER [None]
  - SPINAL DISORDER [None]
